FAERS Safety Report 21476138 (Version 1)
Quarter: 2022Q4

REPORT INFORMATION
  Report Type: Spontaneous
  Country: US (occurrence: US)
  Receive Date: 20221019
  Receipt Date: 20221019
  Transmission Date: 20230112
  Serious: No
  Sender: FDA-Public Use
  Company Number: US-TEVA-2022-US-2082104

PATIENT
  Age: 62 Year
  Sex: Male

DRUGS (1)
  1. LIDOCAINE [Suspect]
     Active Substance: LIDOCAINE
     Indication: Product used for unknown indication
     Route: 065

REACTIONS (5)
  - Oedema peripheral [Unknown]
  - Oedema [Unknown]
  - Skin ulcer [Unknown]
  - Spinal disorder [Unknown]
  - Road traffic accident [Unknown]
